FAERS Safety Report 12199696 (Version 1)
Quarter: 2016Q1

REPORT INFORMATION
  Report Type: Spontaneous
  Country: GB (occurrence: GB)
  Receive Date: 20160322
  Receipt Date: 20160322
  Transmission Date: 20160526
  Serious: Yes (Disabling)
  Sender: FDA-Public Use
  Company Number: GB-AMGEN-GBRSP2016033469

PATIENT
  Age: 46 Year
  Sex: Female
  Weight: 79.8 kg

DRUGS (5)
  1. CALCIUM CARBONATE. [Concomitant]
     Active Substance: CALCIUM CARBONATE
  2. GOSERELIN [Concomitant]
     Active Substance: GOSERELIN
  3. PARACETAMOL [Concomitant]
     Active Substance: ACETAMINOPHEN
  4. TAMOXIFEN-TEVA [Concomitant]
  5. XGEVA [Suspect]
     Active Substance: DENOSUMAB
     Indication: METASTASES TO BONE
     Dosage: 120 MG, UNK
     Route: 058

REACTIONS (17)
  - Pyrexia [Recovered/Resolved with Sequelae]
  - Ocular discomfort [Recovered/Resolved]
  - Sneezing [Recovered/Resolved]
  - Headache [Recovered/Resolved]
  - Secretion discharge [Not Recovered/Not Resolved]
  - Vomiting [Recovered/Resolved]
  - Fatigue [Not Recovered/Not Resolved]
  - Asthenia [Recovered/Resolved with Sequelae]
  - Arrhythmia [Unknown]
  - Myalgia [Recovering/Resolving]
  - Cough [Not Recovered/Not Resolved]
  - Rhinorrhoea [Recovered/Resolved]
  - Lacrimation increased [Recovered/Resolved]
  - Thirst [Unknown]
  - Dyspnoea [Unknown]
  - Vertigo [Recovered/Resolved]
  - Bone pain [Recovering/Resolving]

NARRATIVE: CASE EVENT DATE: 20160107
